FAERS Safety Report 6430374-1 (Version None)
Quarter: 2009Q4

REPORT INFORMATION
  Report Type: 
  Country: None (occurrence: None)
  Receive Date: 20091106
  Receipt Date: 20091007
  Transmission Date: 20100525
  Serious: No
  Sender: FDA-Public Use
  Company Number: US-BAYER-200915501BCC

PATIENT
  Age: 18 Year
  Sex: Male
  Weight: 136 kg

DRUGS (1)
  1. ALEVE (CAPLET) [Suspect]
     Indication: PAIN IN EXTREMITY
     Dosage: AS USED: 440/660 MG  UNIT DOSE: 220 MG
     Route: 048
     Dates: start: 20091007

REACTIONS (1)
  - NO ADVERSE EVENT [None]
